FAERS Safety Report 9548376 (Version 4)
Quarter: 2013Q4

REPORT INFORMATION
  Report Type: Report from Study
  Country: DK (occurrence: DK)
  Receive Date: 20130924
  Receipt Date: 20131121
  Transmission Date: 20140711
  Serious: Yes (Hospitalization)
  Sender: FDA-Public Use
  Company Number: DK-CELGENEUS-044-C4047-13070711

PATIENT
  Age: 60 Year
  Sex: Male
  Weight: 82.5 kg

DRUGS (35)
  1. CC-4047 [Suspect]
     Indication: PLASMA CELL MYELOMA
     Dosage: 4 MILLIGRAM
     Route: 048
     Dates: start: 20130528, end: 20130624
  2. CC-4047 [Suspect]
     Dosage: 4 MILLIGRAM
     Route: 048
     Dates: start: 20130625, end: 20130715
  3. CC-4047 [Suspect]
     Dosage: 4 MILLIGRAM
     Route: 048
     Dates: start: 20130722, end: 20130819
  4. CC-4047 [Suspect]
     Dosage: 4 MILLIGRAM
     Route: 048
     Dates: end: 20130617
  5. CC-4047 [Suspect]
     Dosage: 4 MILLIGRAM
     Route: 048
     Dates: start: 20130820
  6. DEXAMETHASONE [Suspect]
     Indication: PLASMA CELL MYELOMA
     Dosage: 40 MILLIGRAM
     Route: 065
     Dates: start: 20130528, end: 20130624
  7. DEXAMETHASONE [Suspect]
     Dosage: 40 MILLIGRAM
     Route: 065
     Dates: start: 20130625
  8. DEXAMETHASONE [Suspect]
     Dosage: 20 MILLIGRAM
     Route: 065
     Dates: start: 20130722, end: 20130819
  9. DEXAMETHASONE [Suspect]
     Dosage: 40 MILLIGRAM
     Route: 065
     Dates: end: 20130618
  10. DEXAMETHASONE [Suspect]
     Dosage: 20 MILLIGRAM
     Route: 065
     Dates: start: 20130820
  11. SPIRONOLACTONE [Concomitant]
     Indication: PROPHYLAXIS
     Dosage: 50 MILLIGRAM
     Route: 048
  12. GASTRO TIMELETS [Concomitant]
     Indication: PROPHYLAXIS
     Route: 048
  13. GASTRO TIMELETS [Concomitant]
     Dosage: 10 MILLIGRAM
     Route: 048
     Dates: start: 20130723
  14. LACTULOSE [Concomitant]
     Indication: PROPHYLAXIS
     Dosage: 60 MILLILITER
     Route: 048
     Dates: start: 20130204
  15. DARBEPOETIN [Concomitant]
     Indication: ANAEMIA
     Dosage: 500 MICROGRAM
     Route: 050
     Dates: start: 20130304
  16. FUROSEMIDE [Concomitant]
     Indication: PROPHYLAXIS
     Dosage: 160 MILLIGRAM
     Route: 048
     Dates: start: 20130225
  17. FUROSEMIDE [Concomitant]
     Dosage: 80 MILLIGRAM
     Route: 048
     Dates: start: 20130225
  18. OXYCODAN [Concomitant]
     Indication: PROPHYLAXIS
     Dosage: 240 MILLIGRAM
     Route: 048
     Dates: start: 20130305
  19. OXYCODAN [Concomitant]
     Route: 048
     Dates: start: 20130302
  20. LYRICA [Concomitant]
     Indication: PROPHYLAXIS
     Dosage: 150 MILLIGRAM
     Route: 048
     Dates: start: 20130331
  21. DIAZEPAM [Concomitant]
     Indication: PROPHYLAXIS
     Route: 048
     Dates: start: 20130827
  22. NORITREN [Concomitant]
     Indication: PAIN
     Dosage: 10 MILLIGRAM
     Route: 048
     Dates: start: 20130205
  23. IMOCLONE [Concomitant]
     Indication: PROPHYLAXIS
     Dosage: 7.5 MILLIGRAM
     Route: 048
     Dates: start: 20130204
  24. ZOFRAN [Concomitant]
     Indication: PROPHYLAXIS
     Route: 048
     Dates: start: 20130331
  25. MAGNESIUM OXIDE [Concomitant]
     Indication: PROPHYLAXIS
     Dosage: 1000 MILLIGRAM
     Route: 048
     Dates: start: 20130204
  26. UNIKALK SILVER [Concomitant]
     Indication: PROPHYLAXIS
     Route: 048
     Dates: start: 20130204
  27. UNIKALK SILVER [Concomitant]
     Dosage: 2 TABLET
     Route: 048
     Dates: start: 20130204
  28. ENOXAPARIN [Concomitant]
     Indication: PROPHYLAXIS
     Dosage: 100 MILLIGRAM
     Route: 058
     Dates: start: 20130226
  29. ENOXAPARIN [Concomitant]
     Dosage: 120 MILLIGRAM
     Route: 065
  30. OXYNORM [Concomitant]
     Indication: PAIN
     Route: 048
     Dates: start: 20130302
  31. OXYNORM [Concomitant]
     Dosage: 240 MILLIGRAM
     Route: 048
     Dates: start: 20130305
  32. DALTEPARIN [Concomitant]
     Indication: PROPHYLAXIS
     Dosage: 18000 IU (INTERNATIONAL UNIT)
     Route: 065
     Dates: start: 20130226
  33. DALTEPARIN [Concomitant]
     Dosage: 18000 IU (INTERNATIONAL UNIT)
     Route: 065
     Dates: start: 20130723
  34. ACICLODAN [Concomitant]
     Indication: PROPHYLAXIS
     Dosage: 400 MILLIGRAM
     Route: 048
     Dates: start: 20130204
  35. FILGRASTIM [Concomitant]
     Indication: PROPHYLAXIS
     Dosage: UG
     Route: 058
     Dates: start: 20130827

REACTIONS (5)
  - Infection [Recovered/Resolved]
  - Pneumonia [Recovered/Resolved]
  - Pyrexia [Recovered/Resolved]
  - Pyrexia [Recovered/Resolved]
  - Pyrexia [Recovered/Resolved]
